FAERS Safety Report 5237974-5 (Version None)
Quarter: 2007Q1

REPORT INFORMATION
  Report Type: 
  Country: None (occurrence: None)
  Receive Date: 20070214
  Receipt Date: 20070202
  Transmission Date: 20070707
  Serious: Yes (Other)
  Sender: FDA-Public Use
  Company Number: JP-PFIZER INC-2007008973

PATIENT
  Age: 56 Year
  Sex: Female

DRUGS (5)
  1. DETRUSITOL SR [Suspect]
     Indication: POLLAKIURIA
     Dosage: DAILY DOSE:2MG
     Route: 048
  2. SENNOSIDES [Concomitant]
     Route: 048
  3. ADALAT [Concomitant]
     Route: 048
  4. EUGLUCON [Concomitant]
     Route: 048
  5. VALSARTAN [Concomitant]
     Route: 048

REACTIONS (1)
  - GENITAL HAEMORRHAGE [None]
